FAERS Safety Report 17661652 (Version 1)
Quarter: 2020Q2

REPORT INFORMATION
  Report Type: Report from Study
  Country: US (occurrence: US)
  Receive Date: 20200413
  Receipt Date: 20200413
  Transmission Date: 20200713
  Serious: Yes (Death, Hospitalization)
  Sender: FDA-Public Use
  Company Number: US-ROCHE-2579411

PATIENT
  Age: 73 Year
  Sex: Female

DRUGS (2)
  1. OCREVUS [Suspect]
     Active Substance: OCRELIZUMAB
     Indication: RELAPSING-REMITTING MULTIPLE SCLEROSIS
     Dosage: ONGOING: NO?SUBSEQUENT DOSES ON
     Route: 065
     Dates: start: 20180326, end: 20191016
  2. OCREVUS [Suspect]
     Active Substance: OCRELIZUMAB
     Indication: PRIMARY PROGRESSIVE MULTIPLE SCLEROSIS
     Route: 065
     Dates: start: 20170907, end: 20170921

REACTIONS (3)
  - Anaemia [Unknown]
  - Malnutrition [Unknown]
  - Sepsis [Fatal]

NARRATIVE: CASE EVENT DATE: 20200315
